FAERS Safety Report 5546368-4 (Version None)
Quarter: 2007Q4

REPORT INFORMATION
  Report Type: 
  Country: None (occurrence: None)
  Receive Date: 20071123
  Receipt Date: 20061106
  Transmission Date: 20080405
  Serious: Yes (Other)
  Sender: FDA-Public Use
  Company Number: US-JNJFOC-20061101658

PATIENT
  Age: 50 Year
  Sex: Female

DRUGS (3)
  1. LEVAQUIN [Suspect]
     Indication: UPPER RESPIRATORY TRACT INFECTION
     Dosage: 500 MG, IN 1 DAY, ORAL
     Route: 048
     Dates: start: 20061001, end: 20061001
  2. DICLOFENAC (DICLOFENAC) TABLETS [Concomitant]
  3. SEROQUEL [Concomitant]

REACTIONS (1)
  - NEPHROPATHY TOXIC [None]
